FAERS Safety Report 18045123 (Version 4)
Quarter: 2021Q1

REPORT INFORMATION
  Report Type: Spontaneous
  Country: US (occurrence: US)
  Receive Date: 20200720
  Receipt Date: 20210202
  Transmission Date: 20210419
  Serious: Yes (Other)
  Sender: FDA-Public Use
  Company Number: US-PFIZER INC-2016000566

PATIENT
  Age: 56 Year
  Sex: Male
  Weight: 78.46 kg

DRUGS (8)
  1. LYRICA [Suspect]
     Active Substance: PREGABALIN
     Dosage: 500 MG, DAILY (2 TABS IN AM, 1 TAB AT NOON, 2 TABS IN EVENING)
     Dates: start: 20161111
  2. LYRICA [Suspect]
     Active Substance: PREGABALIN
     Dosage: 500 MG, DAILY (2 TABS IN AM, 1 TAB AT NOON, 2 TABS IN EVENING)
     Dates: start: 20190315
  3. LYRICA [Suspect]
     Active Substance: PREGABALIN
     Dosage: 500 MG, DAILY (2 TABS IN AM, 1 TAB AT NOON, 2 TABS IN EVENING)
     Dates: start: 20171107
  4. LYRICA [Suspect]
     Active Substance: PREGABALIN
     Dosage: 500 MG, DAILY (2 TABS IN AM, 1 TAB AT NOON, 2 TABS IN EVENING))
     Dates: start: 20181204
  5. LYRICA [Suspect]
     Active Substance: PREGABALIN
     Indication: POST-TRAUMATIC PAIN
     Dosage: 500 MG, DAILY (2 TABS IN AM, 1 TAB AT NOON, 2 TABS IN EVENING)
     Dates: start: 20151210
  6. LYRICA [Suspect]
     Active Substance: PREGABALIN
     Dosage: 500 MG, DAILY (2 TABS IN AM, 1 TAB AT NOON, 2 TABS IN EVENING)
     Dates: start: 20160628
  7. LYRICA [Suspect]
     Active Substance: PREGABALIN
     Dosage: 500 MG, DAILY (2 TABS IN AM, 1 TAB AT NOON, 2 TABS IN EVENING)
     Dates: start: 20170718
  8. LYRICA [Suspect]
     Active Substance: PREGABALIN
     Dosage: 500 MG, DAILY (2 TABS IN AM, 1 TAB AT NOON, 2 TABS IN EVENING)
     Dates: start: 20191108

REACTIONS (2)
  - Oxygen saturation decreased [Unknown]
  - Limb injury [Not Recovered/Not Resolved]
